FAERS Safety Report 25405837 (Version 1)
Quarter: 2025Q2

REPORT INFORMATION
  Report Type: Spontaneous
  Country: US (occurrence: None)
  Receive Date: 20250605
  Receipt Date: 20250605
  Transmission Date: 20250716
  Serious: Yes (Hospitalization)
  Sender: FDA-CTU
  Company Number: None

PATIENT
  Sex: Female

DRUGS (11)
  1. LENALIDOMIDE [Suspect]
     Active Substance: LENALIDOMIDE
     Indication: Plasma cell myeloma
     Route: 048
     Dates: start: 20220628
  2. ALLEGRA [Concomitant]
     Active Substance: FEXOFENADINE HYDROCHLORIDE
  3. VITAMIN B COMPLEX [Concomitant]
     Active Substance: CYANOCOBALAMIN\DEXPANTHENOL\NIACINAMIDE\PYRIDOXINE HYDROCHLORIDE\RIBOFLAVIN 5^-PHOSPHATE SODIUM\THIA
  4. COLESTID [Concomitant]
     Active Substance: COLESTIPOL HYDROCHLORIDE
  5. CRANBERRY [Concomitant]
     Active Substance: CRANBERRY
  6. IRON [Concomitant]
     Active Substance: IRON
  7. MAGNESIUM [Concomitant]
     Active Substance: MAGNESIUM
  8. OCUVITE [Concomitant]
     Active Substance: VITAMINS
  9. POTASSIUM [Concomitant]
     Active Substance: POTASSIUM
  10. TUMS ULTRA [Concomitant]
     Active Substance: CALCIUM CARBONATE
  11. TYLENOL [Concomitant]
     Active Substance: ACETAMINOPHEN

REACTIONS (1)
  - Therapy interrupted [None]
